FAERS Safety Report 7755456-3 (Version None)
Quarter: 2011Q3

REPORT INFORMATION
  Report Type: 
  Country: None (occurrence: None)
  Receive Date: 20110916
  Receipt Date: 20110906
  Transmission Date: 20111222
  Serious: Yes (Other)
  Sender: FDA-Public Use
  Company Number: GB-JNJFOC-20110903366

PATIENT
  Sex: Female
  Weight: 56 kg

DRUGS (7)
  1. STELARA [Suspect]
     Indication: PSORIASIS
     Route: 058
     Dates: start: 20101105, end: 20101203
  2. ACITRETIN [Concomitant]
     Route: 065
     Dates: start: 20101001
  3. DIPROSALIC [Concomitant]
     Route: 065
     Dates: start: 20101103
  4. SIMVASTATIN [Concomitant]
     Route: 065
  5. ALENDRONIC ACID [Concomitant]
     Route: 065
     Dates: start: 20110801
  6. ALPHOSYL HC [Concomitant]
     Route: 065
     Dates: start: 20100131
  7. FLUOXETINE [Concomitant]
     Route: 065

REACTIONS (1)
  - LENTIGO MALIGNA STAGE UNSPECIFIED [None]
